FAERS Safety Report 8806723 (Version 1)
Quarter: 2012Q4

REPORT INFORMATION
  Report Type: 
  Country: US (occurrence: US)
  Receive Date: 20120925
  Receipt Date: 20120925
  Transmission Date: 20130627
  Serious: No
  Sender: FDA-Public Use
  Company Number: US-009507513-1208USA007161

PATIENT
  Age: 58 None
  Sex: Male
  Weight: 120.64 kg

DRUGS (4)
  1. PEG-INTRON [Suspect]
     Indication: HEPATITIS C
     Dosage: Redipen
     Dates: start: 20120723
  2. REBETOL [Suspect]
     Indication: HEPATITIS C
     Dosage: UNK
     Dates: start: 20120723
  3. VICTRELIS [Suspect]
     Indication: HEPATITIS C
     Dosage: UNK
     Dates: start: 20120820
  4. SUBOXONE [Concomitant]
     Indication: DRUG DEPENDENCE

REACTIONS (6)
  - Sleep disorder [Unknown]
  - Pollakiuria [Unknown]
  - Feeling abnormal [Unknown]
  - Weight decreased [Unknown]
  - Depression [Unknown]
  - Anxiety [Unknown]
